FAERS Safety Report 8091976-2 (Version None)
Quarter: 2012Q1

REPORT INFORMATION
  Report Type: 
  Country: None (occurrence: None)
  Receive Date: 20120129
  Receipt Date: 20111121
  Transmission Date: 20120608
  Serious: No
  Sender: FDA-Public Use
  Company Number: US-ABBOTT-11P-163-0867202-00

PATIENT
  Sex: Male

DRUGS (5)
  1. HUMIRA [Suspect]
     Indication: CROHN'S DISEASE
     Dosage: DAY 1  LOADING DOSE
     Route: 058
     Dates: start: 20111019, end: 20111019
  2. HUMIRA [Suspect]
     Dosage: 2 PENS 80 MG DAY 15
  3. PREDNISONE TAB [Concomitant]
     Indication: PRODUCT USED FOR UNKNOWN INDICATION
     Dosage: DAILY
  4. PREVACID [Concomitant]
     Indication: PRODUCT USED FOR UNKNOWN INDICATION
  5. HUMIRA [Suspect]
     Dates: end: 20111101

REACTIONS (11)
  - HEADACHE [None]
  - MUSCULAR WEAKNESS [None]
  - VISION BLURRED [None]
  - NODULE [None]
  - DIZZINESS [None]
  - MYDRIASIS [None]
  - PALPITATIONS [None]
  - PANIC ATTACK [None]
  - ANXIETY [None]
  - DYSPNOEA [None]
  - LOSS OF CONSCIOUSNESS [None]
